FAERS Safety Report 12972035 (Version 2)
Quarter: 2016Q4

REPORT INFORMATION
  Report Type: Spontaneous
  Country: US (occurrence: US)
  Receive Date: 20161124
  Receipt Date: 20161130
  Transmission Date: 20170207
  Serious: No
  Sender: FDA-Public Use
  Company Number: US-HORIZON-ACT-0274-2016

PATIENT
  Age: 18 Year
  Sex: Female

DRUGS (4)
  1. SPORANOX [Concomitant]
     Active Substance: ITRACONAZOLE
  2. ACTIMMUNE [Suspect]
     Active Substance: INTERFERON GAMMA-1B
     Indication: CHRONIC GRANULOMATOUS DISEASE
     Dosage: 100 ?G THREE TIMES A WEEK
     Dates: start: 20131028
  3. BACTRIM [Concomitant]
     Active Substance: SULFAMETHOXAZOLE\TRIMETHOPRIM
  4. CLINDAMYCIN. [Concomitant]
     Active Substance: CLINDAMYCIN

REACTIONS (5)
  - Drug dose omission [Unknown]
  - Malaise [Unknown]
  - Pyrexia [Unknown]
  - Axillary mass [Unknown]
  - Headache [Unknown]

NARRATIVE: CASE EVENT DATE: 20161110
